FAERS Safety Report 15159676 (Version 1)
Quarter: 2018Q3

REPORT INFORMATION
  Report Type: Spontaneous
  Country: BE (occurrence: BE)
  Receive Date: 20180718
  Receipt Date: 20180718
  Transmission Date: 20181010
  Serious: Yes (Hospitalization)
  Sender: FDA-Public Use
  Company Number: BE-TEVA-2018-BE-928138

PATIENT
  Sex: Male

DRUGS (2)
  1. AMLOR [Suspect]
     Active Substance: AMLODIPINE BESYLATE
     Route: 065
  2. LOSARTAN. [Suspect]
     Active Substance: LOSARTAN
     Route: 065

REACTIONS (3)
  - Pleurisy [Unknown]
  - Cough [Unknown]
  - Pneumonia [Unknown]

NARRATIVE: CASE EVENT DATE: 20170910
